FAERS Safety Report 8132749-1 (Version None)
Quarter: 2012Q1

REPORT INFORMATION
  Report Type: 
  Country: None (occurrence: None)
  Receive Date: 20120208
  Receipt Date: 20120130
  Transmission Date: 20120608
  Serious: Yes (Hospitalization)
  Sender: FDA-Public Use
  Company Number: TCI2012A00370

PATIENT
  Age: 74 Year
  Sex: Male

DRUGS (5)
  1. HMG COA REDUCTASE INHIBITORS [Concomitant]
  2. HMG COA REDUCTASE INHIBITORS [Concomitant]
  3. ALPHA GLUCOSIDASE INHIBITORS [Concomitant]
  4. ACTOS [Suspect]
     Indication: TYPE 2 DIABETES MELLITUS
     Dosage: 15 MG (15 MG, 1 D)
     Route: 048
     Dates: start: 20090805
  5. SULFONAMIDES, UREA DERIVATIVES [Concomitant]

REACTIONS (1)
  - CEREBRAL INFARCTION [None]
